FAERS Safety Report 8251545-8 (Version None)
Quarter: 2012Q1

REPORT INFORMATION
  Report Type: 
  Country: None (occurrence: None)
  Receive Date: 20120321
  Receipt Date: 20110816
  Transmission Date: 20120608
  Serious: Yes (Hospitalization)
  Sender: FDA-Public Use
  Company Number: PHHY2011US52059

PATIENT
  Age: 72 Year
  Sex: Female

DRUGS (9)
  1. LOSARTAN POTASSIUM [Suspect]
     Indication: BLOOD PRESSURE
     Dosage: 50 MG
  2. PREMARIN [Concomitant]
  3. MECLIZINE [Suspect]
  4. METOPROLOL TARTRATE [Concomitant]
  5. PROGESTERONE [Concomitant]
  6. SYNTHROID [Concomitant]
  7. LANSOPRAZOLE [Concomitant]
  8. TEKTAMLO (ALISKIREN, AMLODIPINE) TABLET, 150/5MG [Suspect]
     Indication: HYPERTENSION
     Dosage: 150/5MG, QD
  9. NORVASC [Suspect]

REACTIONS (12)
  - BLOOD PRESSURE INCREASED [None]
  - DIZZINESS [None]
  - VERTIGO [None]
  - SWELLING [None]
  - HYPERGLYCAEMIA [None]
  - PYREXIA [None]
  - SOMNOLENCE [None]
  - MALAISE [None]
  - HYPERHIDROSIS [None]
  - ASTHENIA [None]
  - ARTHROPATHY [None]
  - NERVOUSNESS [None]
